FAERS Safety Report 20097151 (Version 3)
Quarter: 2022Q1

REPORT INFORMATION
  Report Type: Spontaneous
  Country: BR (occurrence: BR)
  Receive Date: 20211122
  Receipt Date: 20220122
  Transmission Date: 20220423
  Serious: Yes (Other)
  Sender: FDA-Public Use
  Company Number: BR-NOVARTISPH-NVSC2021BR264756

PATIENT
  Age: 38 Week
  Sex: Male
  Weight: 14.5 kg

DRUGS (9)
  1. ZOLGENSMA [Suspect]
     Active Substance: ONASEMNOGENE ABEPARVOVEC-XIOI
     Indication: Spinal muscular atrophy
     Dosage: UNK UNK, 1,54 X 10 (15) VG ( ENDOVENOUS) (77ML) ONCE/SINGLE
     Route: 042
     Dates: start: 20210924, end: 20210924
  2. PREDNISOLONE [Concomitant]
     Active Substance: PREDNISOLONE
     Indication: Thrombocytopenia
     Dosage: 2 MG/KG, QD
     Route: 065
     Dates: start: 20210923, end: 20211009
  3. PREDNISOLONE [Concomitant]
     Active Substance: PREDNISOLONE
     Dosage: 1 MG/KG, QD
     Route: 065
  4. PREDNISOLONE [Concomitant]
     Active Substance: PREDNISOLONE
     Dosage: 1.6 MG/KG, QD
     Route: 065
     Dates: start: 20211009, end: 20211015
  5. PREDNISOLONE [Concomitant]
     Active Substance: PREDNISOLONE
     Dosage: 1.3 MG/KG, QD
     Route: 065
     Dates: start: 20211015, end: 20211104
  6. PREDNISOLONE [Concomitant]
     Active Substance: PREDNISOLONE
     Dosage: 1.6 MG/KG, QD (INCREASED TRANSAMINASES)
     Route: 065
     Dates: start: 20211104, end: 20211124
  7. PREDNISOLONE [Concomitant]
     Active Substance: PREDNISOLONE
     Dosage: 1.3 MG/KG, QD
     Route: 065
     Dates: start: 20211124
  8. ACETAMINOPHEN [Concomitant]
     Active Substance: ACETAMINOPHEN
     Indication: Product used for unknown indication
     Dosage: 1.8 ML
     Route: 065
  9. METAMIZOLE SODIUM [Concomitant]
     Active Substance: METAMIZOLE SODIUM
     Indication: Product used for unknown indication
     Dosage: 10 DRP
     Route: 065

REACTIONS (6)
  - Hepatic enzyme increased [Not Recovered/Not Resolved]
  - Gamma-glutamyltransferase increased [Unknown]
  - Aspartate aminotransferase increased [Unknown]
  - Alanine aminotransferase increased [Unknown]
  - Irritability [Unknown]
  - Troponin I increased [Recovered/Resolved]

NARRATIVE: CASE EVENT DATE: 20211001
